FAERS Safety Report 16320755 (Version 1)
Quarter: 2019Q2

REPORT INFORMATION
  Report Type: Spontaneous
  Country: US (occurrence: US)
  Receive Date: 20190516
  Receipt Date: 20190516
  Transmission Date: 20190711
  Serious: No
  Sender: FDA-Public Use
  Company Number: US-JNJFOC-20190441936

PATIENT
  Sex: Female

DRUGS (3)
  1. NITROFURANTIN [Concomitant]
     Active Substance: NITROFURANTOIN
     Route: 065
  2. STELARA [Suspect]
     Active Substance: USTEKINUMAB
     Indication: RHEUMATOID ARTHRITIS
     Route: 058
     Dates: start: 2018
  3. FLUOROMETHOLONE. [Concomitant]
     Active Substance: FLUOROMETHOLONE
     Route: 065

REACTIONS (3)
  - Product dose omission [Recovered/Resolved]
  - Product use in unapproved indication [Unknown]
  - Off label use [Unknown]
